FAERS Safety Report 5238938-8 (Version None)
Quarter: 2007Q1

REPORT INFORMATION
  Report Type: 
  Country: None (occurrence: None)
  Receive Date: 20070215
  Receipt Date: 20070206
  Transmission Date: 20070707
  Serious: Yes (Death, Other)
  Sender: FDA-Public Use
  Company Number: FR-PFIZER INC-2007011927

PATIENT
  Sex: Male

DRUGS (4)
  1. IRINOTECAN HCL [Suspect]
     Indication: COLORECTAL CANCER METASTATIC
  2. FLUOROURACIL [Concomitant]
  3. CALCIUM FOLINATE [Concomitant]
  4. BEVACIZUMAB [Concomitant]

REACTIONS (7)
  - APHASIA [None]
  - COLORECTAL CANCER METASTATIC [None]
  - CONDITION AGGRAVATED [None]
  - DEPRESSED LEVEL OF CONSCIOUSNESS [None]
  - FEBRILE NEUTROPENIA [None]
  - INFECTION [None]
  - PLATELET COUNT DECREASED [None]
